FAERS Safety Report 6343357-7 (Version None)
Quarter: 2009Q3

REPORT INFORMATION
  Report Type: 
  Country: None (occurrence: None)
  Receive Date: 20090908
  Receipt Date: 20090831
  Transmission Date: 20100115
  Serious: Yes (Disabling)
  Sender: FDA-Public Use
  Company Number: PHHY2009IT37078

PATIENT
  Sex: Female

DRUGS (2)
  1. ZOMETA [Suspect]
     Indication: BREAST CANCER
     Dosage: 4 MG, QMO
     Route: 048
     Dates: start: 20030501, end: 20040531
  2. ARIMIDEX [Concomitant]
     Dosage: 1 MG
     Route: 048
     Dates: start: 20030101, end: 20041231

REACTIONS (2)
  - JAW OPERATION [None]
  - OSTEONECROSIS [None]
